FAERS Safety Report 4988741-9 (Version None)
Quarter: 2006Q2

REPORT INFORMATION
  Report Type: 
  Country: None (occurrence: None)
  Receive Date: 20060502
  Receipt Date: 20050414
  Transmission Date: 20061013
  Serious: Yes (Hospitalization)
  Sender: FDA-Public Use
  Company Number: US-MERCK-0504USA02386

PATIENT
  Age: 48 Year
  Sex: Female
  Weight: 58 kg

DRUGS (1)
  1. VIOXX [Suspect]
     Indication: ARTHRITIS
     Route: 048
     Dates: start: 20000201, end: 20000701

REACTIONS (6)
  - BACK PAIN [None]
  - CARDIAC MURMUR [None]
  - HAND DEFORMITY [None]
  - INJURY [None]
  - INTESTINAL FUNCTIONAL DISORDER [None]
  - OEDEMA PERIPHERAL [None]
